FAERS Safety Report 13412660 (Version 3)
Quarter: 2023Q2

REPORT INFORMATION
  Report Type: Spontaneous
  Country: US (occurrence: US)
  Receive Date: 20170406
  Receipt Date: 20230414
  Transmission Date: 20230721
  Serious: No
  Sender: FDA-Public Use
  Company Number: US-JNJFOC-20170308668

PATIENT
  Age: 19 Year
  Sex: Male

DRUGS (4)
  1. RISPERDAL [Suspect]
     Active Substance: RISPERIDONE
     Indication: Schizophrenia
     Route: 048
     Dates: end: 20110526
  2. RISPERDAL [Suspect]
     Active Substance: RISPERIDONE
     Dosage: DOSE WAS INCREASED TO 2 MG IN MORNING AND 4 MG IN EVENING
     Route: 048
     Dates: start: 20110526, end: 20110621
  3. RISPERIDONE [Suspect]
     Active Substance: RISPERIDONE
     Indication: Schizophrenia
     Dosage: 2 MG ONCE IN NIGHT
     Route: 048
     Dates: start: 20091210, end: 20100306
  4. RISPERIDONE [Suspect]
     Active Substance: RISPERIDONE
     Dosage: 2 MG TWICE A DAY
     Route: 048
     Dates: start: 20120907

REACTIONS (3)
  - Blood prolactin increased [Unknown]
  - Emotional disorder [Unknown]
  - Gynaecomastia [Unknown]

NARRATIVE: CASE EVENT DATE: 20110510
